FAERS Safety Report 19501602 (Version 1)
Quarter: 2021Q3

REPORT INFORMATION
  Report Type: Spontaneous
  Country: DE (occurrence: DE)
  Receive Date: 20210707
  Receipt Date: 20210707
  Transmission Date: 20211014
  Serious: Yes (Hospitalization)
  Sender: FDA-Public Use
  Company Number: DE-TEVA-2021-DE-1928321

PATIENT
  Age: 84 Year
  Sex: Male

DRUGS (16)
  1. LERCANIDIPIN [Concomitant]
     Active Substance: LERCANIDIPINE
     Dosage: 9.44 MILLIGRAM DAILY;  1?0?0?0,
     Route: 048
  2. NITROLINGUAL [Concomitant]
     Active Substance: NITROGLYCERIN
     Dosage: 0.4 MG ,  IF NECESSARY, SPRAY
     Route: 055
  3. PANTOPRAZOL [Concomitant]
     Active Substance: PANTOPRAZOLE SODIUM
     Dosage: 40 MILLIGRAM DAILY;  1?0?0?0,
     Route: 048
  4. OLODATEROL/TIOTROPIUMBROMID [Concomitant]
     Dosage: 2 DOSAGE FORMS DAILY; 2.5|2.5 UG, 2?0?0?0, METERED DOSE AEROSOL
     Route: 055
  5. BIOTIN [Concomitant]
     Active Substance: BIOTIN
     Dosage: 1 DOSAGE FORMS DAILY; 0?0?1?0,
     Route: 048
  6. CYANOCOBALAMIN (VITAMIN B12) [Concomitant]
     Dosage: 1 DOSAGE FORMS DAILY; 1?0?0?0
     Route: 048
  7. CARVEDILOL. [Suspect]
     Active Substance: CARVEDILOL
     Dosage: 25 MILLIGRAM DAILY;  1?0?1?0,
     Route: 048
  8. INSULIN DEGLUDEC [Concomitant]
     Active Substance: INSULIN DEGLUDEC
     Dosage: 10 IU (INTERNATIONAL UNIT) DAILY;  1?0?0?0,
     Route: 058
  9. FENOTEROL/IPRATROPIUMBROMID [Concomitant]
     Dosage: 39.47 | 20.16 UG, IF NECESSARY 2 STROKES, METERED DOSE INHALER
     Route: 055
  10. EISEN(II)?KOMPLEX [Concomitant]
     Dosage: 100 MILLIGRAM DAILY;  1?0?0?0
     Route: 048
  11. TORASEMID [Suspect]
     Active Substance: TORSEMIDE
     Dosage: 20 MILLIGRAM DAILY;  1?1?0?0,
     Route: 048
  12. LATANOPROST/TIMOLOL [Concomitant]
     Active Substance: LATANOPROST\TIMOLOL
     Dosage: 1 DOSAGE FORMS DAILY; 5 | 50 MG / UG, 0?0?1?0, DROPS
     Route: 031
  13. FLUTICASON/SALMETEROL [Concomitant]
     Dosage: 2 DOSAGE FORMS DAILY; 200 IU / ML, 1?0?1?0, METERED DOSE INHALER
     Route: 055
  14. ALLOPURINOL. [Concomitant]
     Active Substance: ALLOPURINOL
     Dosage: 100 MILLIGRAM DAILY;   1?0?0?0
     Route: 048
  15. APIXABAN [Suspect]
     Active Substance: APIXABAN
     Dosage: 10 MILLIGRAM DAILY; 5 MG, 1?0?1?0,
     Route: 048
  16. CANDESARTAN. [Concomitant]
     Active Substance: CANDESARTAN
     Dosage: 32 MILLIGRAM DAILY;  1?0?1?0,
     Route: 048

REACTIONS (4)
  - General physical health deterioration [Unknown]
  - Dyspnoea [Unknown]
  - Haematochezia [Unknown]
  - Contraindicated product administered [Unknown]
